FAERS Safety Report 19447961 (Version 1)
Quarter: 2021Q2

REPORT INFORMATION
  Report Type: Spontaneous
  Country: US (occurrence: US)
  Receive Date: 20210621
  Receipt Date: 20210621
  Transmission Date: 20210717
  Serious: No
  Sender: FDA-Public Use
  Company Number: None

PATIENT
  Age: 36 Year
  Sex: Female
  Weight: 50 kg

DRUGS (1)
  1. ARMODAFINIL (ARMODAFINIL 150MG TAB) [Suspect]
     Active Substance: ARMODAFINIL
     Indication: SLEEP DISORDER
     Route: 048
     Dates: start: 20210319, end: 20210325

REACTIONS (1)
  - Angioedema [None]
